FAERS Safety Report 7625556-7 (Version None)
Quarter: 2011Q3

REPORT INFORMATION
  Report Type: 
  Country: None (occurrence: None)
  Receive Date: 20110721
  Receipt Date: 20110713
  Transmission Date: 20111222
  Serious: Yes (Other)
  Sender: FDA-Public Use
  Company Number: US-ASTELLAS-2011US003582

PATIENT
  Sex: Female
  Weight: 63 kg

DRUGS (14)
  1. PREVACID [Concomitant]
     Indication: PRODUCT USED FOR UNKNOWN INDICATION
     Dosage: 2 DF, BID
     Route: 065
  2. AMLODIPINE [Concomitant]
     Indication: BLOOD PRESSURE
     Dosage: 5 MG, UID/QD
     Route: 048
  3. PLAVIX [Concomitant]
     Indication: ANTICOAGULANT THERAPY
     Dosage: 75 MG, UID/QD
     Route: 048
  4. PROGRAF [Suspect]
     Indication: RENAL AND PANCREAS TRANSPLANT
     Dosage: 3 MG IN MORNING, 2 MG IN EVENING
     Route: 048
     Dates: start: 19970101
  5. SIMVASTATIN [Concomitant]
     Indication: BLOOD CHOLESTEROL
     Dosage: 20 MG, UID/QD
     Route: 048
  6. ASPIRIN [Concomitant]
     Indication: ANTICOAGULANT THERAPY
     Dosage: 81 MG, UID/QD
     Route: 048
  7. METOPROLOL TARTRATE [Concomitant]
     Indication: PRODUCT USED FOR UNKNOWN INDICATION
     Dosage: 25 MG, UID/QD
     Route: 065
  8. AZATHIOPRINE [Concomitant]
     Indication: RENAL AND PANCREAS TRANSPLANT
     Dosage: 100 MG, UID/QD
     Route: 048
     Dates: start: 19910506
  9. FOLIC ACID [Concomitant]
     Indication: PRODUCT USED FOR UNKNOWN INDICATION
     Dosage: 800 MG, UID/QD
     Route: 065
  10. IMURAN [Concomitant]
     Indication: PRODUCT USED FOR UNKNOWN INDICATION
     Dosage: 50 MG, UID/QD
     Route: 065
  11. EFFEXOR [Concomitant]
     Indication: PRODUCT USED FOR UNKNOWN INDICATION
     Dosage: 75 MG, UID/QD
     Route: 065
  12. VITAMIN B-12 [Concomitant]
     Indication: ANAEMIA
     Dosage: UNK
     Route: 065
  13. PROGRAF [Suspect]
     Dosage: 2 MG, BID
     Route: 048
  14. LASIX [Concomitant]
     Indication: DIURETIC THERAPY
     Dosage: 80 MG, UID/QD
     Route: 048

REACTIONS (21)
  - RETINOPATHY [None]
  - CATARACT OPERATION [None]
  - SUICIDAL BEHAVIOUR [None]
  - FOOT FRACTURE [None]
  - GLOMERULONEPHRITIS [None]
  - SKIN ULCER [None]
  - PARAESTHESIA [None]
  - DEPRESSION [None]
  - DRUG INEFFECTIVE [None]
  - KIDNEY TRANSPLANT REJECTION [None]
  - VISUAL FIELD DEFECT [None]
  - APPENDICECTOMY [None]
  - ANAEMIA [None]
  - MUSCULOSKELETAL PAIN [None]
  - STRESS URINARY INCONTINENCE [None]
  - ARTERIOSCLEROSIS CORONARY ARTERY [None]
  - SURGERY [None]
  - GASTROINTESTINAL DISORDER [None]
  - TUBULOINTERSTITIAL NEPHRITIS [None]
  - CHRONIC ALLOGRAFT NEPHROPATHY [None]
  - OFF LABEL USE [None]
